FAERS Safety Report 9912699 (Version 1)
Quarter: 2014Q1

REPORT INFORMATION
  Report Type: Spontaneous
  Country: US (occurrence: None)
  Receive Date: 20140218
  Receipt Date: 20140218
  Transmission Date: 20141002
  Serious: Yes (Other)
  Sender: FDA-Public Use
  Company Number: None

PATIENT
  Age: 63 Year
  Sex: Male

DRUGS (1)
  1. ENBREL 50MG PFS AMGEN [Suspect]
     Route: 058
     Dates: start: 20120201, end: 20140121

REACTIONS (1)
  - Cardiac failure [None]
